FAERS Safety Report 12325376 (Version 1)
Quarter: 2016Q2

REPORT INFORMATION
  Report Type: Spontaneous
  Country: US (occurrence: US)
  Receive Date: 20160502
  Receipt Date: 20160502
  Transmission Date: 20160815
  Serious: No
  Sender: FDA-Public Use
  Company Number: US-GILEAD-2016-0211434

PATIENT
  Age: 77 Year
  Sex: Female

DRUGS (1)
  1. RANEXA [Suspect]
     Active Substance: RANOLAZINE
     Indication: PRODUCT USED FOR UNKNOWN INDICATION
     Dosage: 500 UNKNOWN, BID
     Route: 065
     Dates: start: 2009

REACTIONS (3)
  - Gastrointestinal disorder [Unknown]
  - Medication residue present [Unknown]
  - Ischaemia [Unknown]
